FAERS Safety Report 21392747 (Version 1)
Quarter: 2022Q3

REPORT INFORMATION
  Report Type: Spontaneous
  Country: GB (occurrence: None)
  Receive Date: 20220929
  Receipt Date: 20220929
  Transmission Date: 20221027
  Serious: Yes (Disabling, Other)
  Sender: FDA-Public Use
  Company Number: 2022A331910

PATIENT
  Age: 57 Year
  Sex: Female

DRUGS (3)
  1. QUETIAPINE [Suspect]
     Active Substance: QUETIAPINE
     Indication: Insomnia
     Dosage: 25MG ONCE A NIGHT
     Route: 048
     Dates: end: 20210501
  2. SIMVASTATIN [Concomitant]
     Active Substance: SIMVASTATIN
     Indication: Hypercholesterolaemia
  3. PREDNISOLONE [Concomitant]
     Active Substance: PREDNISOLONE
     Indication: Blister
     Dosage: OVER TEN YEARS

REACTIONS (1)
  - Pemphigoid [Recovering/Resolving]
